FAERS Safety Report 15358446 (Version 15)
Quarter: 2020Q2

REPORT INFORMATION
  Report Type: Report from Study
  Country: CA (occurrence: CA)
  Receive Date: 20180906
  Receipt Date: 20200624
  Transmission Date: 20200713
  Serious: Yes (Hospitalization, Other)
  Sender: FDA-Public Use
  Company Number: CA-JNJFOC-20180833104

PATIENT
  Sex: Male
  Weight: 84 kg

DRUGS (16)
  1. REMICADE [Suspect]
     Active Substance: INFLIXIMAB
     Dosage: UNIT DOSE: 400 MG
     Route: 042
  2. EFUDEX [Concomitant]
     Active Substance: FLUOROURACIL
     Indication: BASAL CELL CARCINOMA
  3. REMICADE [Suspect]
     Active Substance: INFLIXIMAB
     Indication: CROHN^S DISEASE
     Route: 042
     Dates: start: 20150916, end: 20180703
  4. REMICADE [Suspect]
     Active Substance: INFLIXIMAB
     Route: 042
  5. POSANOL [Concomitant]
     Active Substance: POSACONAZOLE
     Indication: ANTIFUNGAL TREATMENT
     Route: 048
  6. EFUDEX [Concomitant]
     Active Substance: FLUOROURACIL
     Indication: BASAL CELL CARCINOMA
  7. REMICADE [Suspect]
     Active Substance: INFLIXIMAB
     Route: 042
  8. XARELTO [Concomitant]
     Active Substance: RIVAROXABAN
     Indication: ANTICOAGULANT THERAPY
     Route: 048
  9. SPIRIVA [Concomitant]
     Active Substance: TIOTROPIUM BROMIDE MONOHYDRATE
     Indication: CHRONIC OBSTRUCTIVE PULMONARY DISEASE
  10. EFUDEX [Concomitant]
     Active Substance: FLUOROURACIL
     Indication: BASAL CELL CARCINOMA
     Route: 065
  11. LIDOCAINE. [Concomitant]
     Active Substance: LIDOCAINE
     Indication: BASAL CELL CARCINOMA
     Route: 065
  12. LOMOTIL [Concomitant]
     Active Substance: ATROPINE SULFATE\DIPHENOXYLATE HYDROCHLORIDE
     Indication: ANTIDIARRHOEAL SUPPORTIVE CARE
     Route: 048
  13. EFUDEX [Concomitant]
     Active Substance: FLUOROURACIL
     Indication: BASAL CELL CARCINOMA
  14. METOPROLOL. [Concomitant]
     Active Substance: METOPROLOL
     Indication: HYPERTENSION
     Route: 048
  15. REMICADE [Suspect]
     Active Substance: INFLIXIMAB
     Route: 042
  16. VENTOLIN [Concomitant]
     Active Substance: ALBUTEROL SULFATE
     Indication: ASTHMA

REACTIONS (11)
  - Nasopharyngitis [Recovering/Resolving]
  - Drug level below therapeutic [Unknown]
  - Scar [Recovering/Resolving]
  - Pulmonary mass [Recovered/Resolved]
  - Basal cell carcinoma [Recovering/Resolving]
  - Post procedural infection [Recovering/Resolving]
  - Urinary tract infection [Recovered/Resolved]
  - Therapeutic product effect decreased [Unknown]
  - Off label use [Unknown]
  - Weight decreased [Recovering/Resolving]
  - Product use issue [Unknown]

NARRATIVE: CASE EVENT DATE: 2017
